FAERS Safety Report 11112074 (Version 2)
Quarter: 2017Q2

REPORT INFORMATION
  Report Type: Spontaneous
  Country: CN (occurrence: CN)
  Receive Date: 20150514
  Receipt Date: 20170619
  Transmission Date: 20170829
  Serious: Yes (Other)
  Sender: FDA-Public Use
  Company Number: CN-PFIZER INC-2015162648

PATIENT
  Sex: Female

DRUGS (5)
  1. ZELDOX [Suspect]
     Active Substance: ZIPRASIDONE
     Indication: SCHIZOPHRENIA
     Dosage: 3 TABLET, DAILY
     Route: 048
     Dates: start: 201207
  2. ZELDOX [Suspect]
     Active Substance: ZIPRASIDONE
     Dosage: 5 TABLET, DAILY
     Route: 048
  3. ZELDOX [Suspect]
     Active Substance: ZIPRASIDONE
     Dosage: 4 TABLET, DAILY
     Route: 048
  4. ESTAZOLAM. [Concomitant]
     Active Substance: ESTAZOLAM
     Dosage: UNK
     Route: 048
     Dates: start: 2015
  5. ZELDOX [Suspect]
     Active Substance: ZIPRASIDONE
     Dosage: 8 TABLET, DAILY
     Route: 048

REACTIONS (2)
  - Gene mutation [Unknown]
  - Breast cancer [Recovered/Resolved]

NARRATIVE: CASE EVENT DATE: 201505
